FAERS Safety Report 16010841 (Version 1)
Quarter: 2019Q1

REPORT INFORMATION
  Report Type: Spontaneous
  Country: US (occurrence: US)
  Receive Date: 20190227
  Receipt Date: 20190227
  Transmission Date: 20190418
  Serious: No
  Sender: FDA-Public Use
  Company Number: US-ASTRAZENECA-2019SE19505

PATIENT
  Age: 598 Month
  Sex: Female
  Weight: 90.7 kg

DRUGS (1)
  1. BYDUREON BCISE [Suspect]
     Active Substance: EXENATIDE
     Indication: BLOOD GLUCOSE DECREASED
     Route: 058
     Dates: start: 201811

REACTIONS (11)
  - Product dose omission [Unknown]
  - Pain [Not Recovered/Not Resolved]
  - Blood glucose increased [Unknown]
  - Device issue [Unknown]
  - Needle issue [Recovered/Resolved]
  - Injection site discomfort [Unknown]
  - Wrong technique in device usage process [Unknown]
  - Device issue [Unknown]
  - Injection site pain [Unknown]
  - Device leakage [Unknown]
  - Device malfunction [Unknown]

NARRATIVE: CASE EVENT DATE: 201811
